FAERS Safety Report 8844756 (Version 1)
Quarter: 2012Q4

REPORT INFORMATION
  Report Type: Spontaneous
  Country: US (occurrence: None)
  Receive Date: 20121015
  Receipt Date: 20121015
  Transmission Date: 20130627
  Serious: No
  Sender: FDA-Public Use
  Company Number: AEUSA201200246

PATIENT
  Sex: Male

DRUGS (1)
  1. HYPERRAB S/D [Suspect]
     Indication: INFECTION PROPHYLAXIS
     Route: 030
     Dates: start: 20120505, end: 20120505

REACTIONS (1)
  - Incorrect dose administered [None]
